FAERS Safety Report 16362218 (Version 1)
Quarter: 2019Q2

REPORT INFORMATION
  Report Type: Spontaneous
  Country: SA (occurrence: SA)
  Receive Date: 20190528
  Receipt Date: 20190528
  Transmission Date: 20190711
  Serious: Yes (Death, Other)
  Sender: FDA-Public Use
  Company Number: SA-BAYER-2019-097620

PATIENT
  Age: 67 Year
  Sex: Male

DRUGS (5)
  1. STIVARGA [Suspect]
     Active Substance: REGORAFENIB
     Indication: COLON CANCER METASTATIC
     Dosage: 120 MG, QD X1 WEEK THEN 1 WEEK REST
     Route: 048
     Dates: start: 2016, end: 2016
  2. PANITUMUMAB [Concomitant]
     Active Substance: PANITUMUMAB
     Dosage: UNK
     Dates: start: 201612
  3. STIVARGA [Suspect]
     Active Substance: REGORAFENIB
     Indication: COLON CANCER METASTATIC
     Dosage: 160 MG, QD FOR X 2 WEEKS
     Route: 048
     Dates: start: 201605, end: 2016
  4. STIVARGA [Suspect]
     Active Substance: REGORAFENIB
     Indication: COLON CANCER METASTATIC
     Dosage: 120 MG, QDX3 WEEKS Q 4 WEEKS
     Dates: start: 2016
  5. STIVARGA [Suspect]
     Active Substance: REGORAFENIB
     Indication: COLON CANCER METASTATIC
     Dosage: 80 MG, QD X2 WEEKS
     Route: 048
     Dates: start: 2016, end: 2016

REACTIONS (5)
  - Diarrhoea [None]
  - Skin exfoliation [None]
  - Colon cancer metastatic [None]
  - Eastern Cooperative Oncology Group performance status worsened [None]
  - Dysphonia [None]

NARRATIVE: CASE EVENT DATE: 2016
